FAERS Safety Report 6063624-4 (Version None)
Quarter: 2009Q1

REPORT INFORMATION
  Report Type: 
  Country: None (occurrence: None)
  Receive Date: 20090129
  Receipt Date: 20090116
  Transmission Date: 20090719
  Serious: Yes (Death)
  Sender: FDA-Public Use
  Company Number: KV200900135

PATIENT
  Sex: Male

DRUGS (1)
  1. MORPHINE SULFATE [Suspect]
     Indication: BACK PAIN
     Dosage: 100 MG, ORAL
     Route: 048
     Dates: start: 20081028, end: 20081031

REACTIONS (3)
  - ABNORMAL BEHAVIOUR [None]
  - ANALGESIC DRUG LEVEL ABOVE THERAPEUTIC [None]
  - SUDDEN DEATH [None]
